FAERS Safety Report 21148500 (Version 2)
Quarter: 2022Q3

REPORT INFORMATION
  Report Type: Spontaneous
  Country: RU (occurrence: RU)
  Receive Date: 20220729
  Receipt Date: 20220809
  Transmission Date: 20221027
  Serious: Yes (Other)
  Sender: FDA-Public Use
  Company Number: RU-NOVARTISPH-NVSC2022RU169941

PATIENT
  Age: 10 Year
  Sex: Male

DRUGS (3)
  1. METHOTREXATE [Suspect]
     Active Substance: METHOTREXATE
     Indication: Acute lymphocytic leukaemia recurrent
     Dosage: 6-20 MG/M2 (FOUR COURSES) HIGH DOSED
     Route: 065
  2. ETOPOSIDE [Suspect]
     Active Substance: ETOPOSIDE
     Indication: Acute lymphocytic leukaemia recurrent
     Dosage: 6-20 MG/M2 (FOUR COURSES) HIGH DOSED
     Route: 065
  3. CYTARABINE [Suspect]
     Active Substance: CYTARABINE
     Indication: Acute lymphocytic leukaemia recurrent
     Dosage: 6-20 MG/M2 (FOUR COURSES) HIGH DOSED
     Route: 065

REACTIONS (6)
  - Neutropenic colitis [Recovered/Resolved]
  - Bone marrow failure [Recovered/Resolved]
  - Agranulocytosis [Recovered/Resolved]
  - Sialoadenitis [Recovered/Resolved]
  - Lymphopenia [Recovered/Resolved]
  - Product use in unapproved indication [Unknown]
